FAERS Safety Report 14405290 (Version 1)
Quarter: 2018Q1

REPORT INFORMATION
  Report Type: Spontaneous
  Country: US (occurrence: US)
  Receive Date: 20180118
  Receipt Date: 20180118
  Transmission Date: 20180509
  Serious: Yes (Other)
  Sender: FDA-Public Use
  Company Number: US-CIPLA LTD.-2018US00930

PATIENT

DRUGS (14)
  1. SODIUM VALPROATE [Suspect]
     Active Substance: VALPROATE SODIUM
     Indication: INFANTILE SPASMS
     Dosage: UNK
     Route: 065
  2. CLOBAZAM [Suspect]
     Active Substance: CLOBAZAM
     Indication: INFANTILE SPASMS
     Dosage: UNK
     Route: 065
  3. ADRENOCORTICOTROPIN HORMONE [Suspect]
     Active Substance: CORTICOTROPIN
     Indication: INFANTILE SPASMS
     Dosage: UNK
     Route: 065
  4. ADRENOCORTICOTROPIN HORMONE [Suspect]
     Active Substance: CORTICOTROPIN
     Indication: TONIC CONVULSION
  5. LEVETIRACETAM. [Suspect]
     Active Substance: LEVETIRACETAM
     Indication: TONIC CONVULSION
  6. PHENOBARBITAL. [Suspect]
     Active Substance: PHENOBARBITAL
     Indication: TONIC CONVULSION
  7. LEVETIRACETAM. [Suspect]
     Active Substance: LEVETIRACETAM
     Indication: INFANTILE SPASMS
     Dosage: UNK
     Route: 065
  8. CLOBAZAM [Suspect]
     Active Substance: CLOBAZAM
     Indication: TONIC CONVULSION
  9. PREDNISONE. [Suspect]
     Active Substance: PREDNISONE
     Indication: TONIC CONVULSION
  10. PERAMPANEL [Suspect]
     Active Substance: PERAMPANEL
     Indication: INFANTILE SPASMS
     Dosage: UNK
     Route: 065
  11. PHENOBARBITAL. [Suspect]
     Active Substance: PHENOBARBITAL
     Indication: INFANTILE SPASMS
     Dosage: UNK
     Route: 065
  12. PREDNISONE. [Suspect]
     Active Substance: PREDNISONE
     Indication: INFANTILE SPASMS
     Dosage: UNK
     Route: 065
  13. PERAMPANEL [Suspect]
     Active Substance: PERAMPANEL
     Indication: TONIC CONVULSION
  14. SODIUM VALPROATE [Suspect]
     Active Substance: VALPROATE SODIUM
     Indication: TONIC CONVULSION

REACTIONS (2)
  - Epilepsy [Unknown]
  - Aicardi^s syndrome [Unknown]
